FAERS Safety Report 5115740-9 (Version None)
Quarter: 2006Q3

REPORT INFORMATION
  Report Type: 
  Country: None (occurrence: None)
  Receive Date: 20060926
  Receipt Date: 20060926
  Transmission Date: 20061208
  Serious: No
  Sender: FDA-Public Use
  Company Number: None

PATIENT
  Age: 61 Year
  Sex: Male
  Weight: 108 kg

DRUGS (1)
  1. VFEND [Suspect]
     Indication: FUNGAL INFECTION
     Dosage: 600 MG DAILY IV
     Route: 042
     Dates: start: 20060711

REACTIONS (3)
  - INFUSION RELATED REACTION [None]
  - PHOTOPSIA [None]
  - VISUAL DISTURBANCE [None]
